FAERS Safety Report 8895299 (Version 3)
Quarter: 2014Q2

REPORT INFORMATION
  Report Type: Spontaneous
  Country: US (occurrence: US)
  Receive Date: 20121107
  Receipt Date: 20140611
  Transmission Date: 20141212
  Serious: Yes (Hospitalization)
  Sender: FDA-Public Use
  Company Number: US-ASTRAZENECA-2012SE81682

PATIENT
  Age: 63 Year
  Sex: Male

DRUGS (1)
  1. CRESTOR [Suspect]
     Indication: THROMBOSIS PROPHYLAXIS
     Route: 048

REACTIONS (6)
  - Haematemesis [Unknown]
  - Gastric polyps [Unknown]
  - Pulmonary embolism [Recovering/Resolving]
  - Nausea [Unknown]
  - Blood cholesterol increased [Unknown]
  - Intentional product misuse [Unknown]
